FAERS Safety Report 7950580-4 (Version None)
Quarter: 2011Q4

REPORT INFORMATION
  Report Type: 
  Country: None (occurrence: None)
  Receive Date: 20111130
  Receipt Date: 20111116
  Transmission Date: 20120403
  Serious: Yes (Hospitalization, Other)
  Sender: FDA-Public Use
  Company Number: US-ASTRAZENECA-2011SE58965

PATIENT
  Age: 646 Month
  Sex: Male
  Weight: 65.8 kg

DRUGS (4)
  1. DRY-TAB [Concomitant]
     Dosage: EVERY DAY
     Route: 048
  2. DALMANE [Concomitant]
     Route: 048
  3. SEROQUEL [Suspect]
     Indication: MOOD SWINGS
     Route: 048
     Dates: start: 20100101
  4. ELAVIL [Concomitant]
     Route: 048

REACTIONS (3)
  - HYDROCELE [None]
  - SCROTAL IRRITATION [None]
  - OFF LABEL USE [None]
